FAERS Safety Report 8428294-6 (Version None)
Quarter: 2012Q2

REPORT INFORMATION
  Report Type: 
  Country: None (occurrence: None)
  Receive Date: 20120611
  Receipt Date: 20120531
  Transmission Date: 20120825
  Serious: Yes (Hospitalization)
  Sender: FDA-Public Use
  Company Number: US-MERCK-1206USA00262

PATIENT
  Age: 58 Year
  Sex: Male

DRUGS (8)
  1. ZOCOR [Suspect]
     Indication: HYPERLIPIDAEMIA
     Route: 048
  2. LEVOFLOXACIN [Suspect]
     Indication: CELLULITIS
     Route: 065
  3. AMOXICILLIN AND CLAVULANATE POTASSIUM [Concomitant]
     Indication: OTITIS MEDIA
     Route: 065
  4. CEFDINIR [Concomitant]
     Indication: CELLULITIS
     Route: 065
  5. LEVOFLOXACIN [Suspect]
     Indication: OTITIS MEDIA
     Route: 065
  6. AMOXICILLIN AND CLAVULANATE POTASSIUM [Concomitant]
     Indication: CELLULITIS
     Route: 065
  7. HYDROCHLOROTHIAZIDE AND LISINOPRIL [Concomitant]
     Route: 065
  8. CEFDINIR [Concomitant]
     Indication: OTITIS MEDIA
     Route: 065

REACTIONS (1)
  - TENDON INJURY [None]
